FAERS Safety Report 16146190 (Version 8)
Quarter: 2021Q2

REPORT INFORMATION
  Report Type: Spontaneous
  Country: US (occurrence: US)
  Receive Date: 20190402
  Receipt Date: 20210401
  Transmission Date: 20210716
  Serious: Yes (Hospitalization)
  Sender: FDA-Public Use
  Company Number: US-PFIZER INC-2019130687

PATIENT
  Age: 80 Year
  Sex: Female
  Weight: 68.04 kg

DRUGS (2)
  1. SKELAXIN [Suspect]
     Active Substance: METAXALONE
     Indication: PAIN
     Dosage: 3200 MG, DAILY (SHE COULD TAKE UP TO 4 800 SMG DAILY)
  2. SKELAXIN [Suspect]
     Active Substance: METAXALONE
     Indication: MUSCLE TIGHTNESS
     Dosage: 800 MG, AS NEEDED (800MG TABLET, 1 TABLET UP TO 4 TIMES A DAY AS NEEDED)
     Route: 048

REACTIONS (4)
  - Therapeutic product effect incomplete [Unknown]
  - Gait disturbance [Unknown]
  - COVID-19 [Unknown]
  - Aortic disorder [Unknown]

NARRATIVE: CASE EVENT DATE: 2020
